FAERS Safety Report 5369764-7 (Version None)
Quarter: 2007Q2

REPORT INFORMATION
  Report Type: 
  Country: None (occurrence: None)
  Receive Date: 20070625
  Receipt Date: 20070621
  Transmission Date: 20071010
  Serious: Yes (Life-Threatening, Hospitalization, Other)
  Sender: FDA-Public Use
  Company Number: GB-ABBOTT-06P-167-0353157-00

PATIENT
  Sex: Male
  Weight: 86 kg

DRUGS (10)
  1. HUMIRA [Suspect]
     Indication: RHEUMATOID ARTHRITIS
     Route: 058
     Dates: start: 20040428
  2. FEXOFENADINE [Concomitant]
     Indication: HYPERSENSITIVITY
  3. SEVERIDE [Concomitant]
     Indication: PULMONARY FIBROSIS
  4. ACETYLSALICYLIC ACID SRT [Concomitant]
     Indication: PROPHYLAXIS
     Dates: start: 20060610
  5. CLOPIDOGREL [Concomitant]
     Indication: CORONARY ARTERY DISEASE
     Dates: start: 20060610
  6. PREDNISOLONE [Concomitant]
     Indication: RHEUMATOID ARTHRITIS
  7. AZATHIAPRINE [Concomitant]
     Indication: RHEUMATOID ARTHRITIS
     Dates: start: 20060601
  8. AZATHIAPRINE [Concomitant]
     Indication: PULMONARY FIBROSIS
  9. LANSOPRAZOLE [Concomitant]
     Indication: GASTROOESOPHAGEAL REFLUX DISEASE
  10. COMMERCIAL HUMIRA [Concomitant]
     Indication: RHEUMATOID ARTHRITIS
     Dates: start: 20031029

REACTIONS (1)
  - MYOCARDIAL INFARCTION [None]
